FAERS Safety Report 9672088 (Version 1)
Quarter: 2013Q4

REPORT INFORMATION
  Report Type: Spontaneous
  Country: TR (occurrence: None)
  Receive Date: 20131104
  Receipt Date: 20131104
  Transmission Date: 20140711
  Serious: Yes (Hospitalization)
  Sender: FDA-Public Use
  Company Number: 2013P1020485

PATIENT
  Age: 16 Year
  Sex: Male

DRUGS (2)
  1. ISONIAZID [Suspect]
     Indication: ANTIBIOTIC PROPHYLAXIS
     Route: 048
  2. PYRIDOXINE [Suspect]
     Indication: TOXICITY TO VARIOUS AGENTS
     Dosage: X6, INTRAMUSCULAR
     Route: 030

REACTIONS (6)
  - Grand mal convulsion [None]
  - Rhabdomyolysis [None]
  - Suicide attempt [None]
  - Vomiting [None]
  - Muscle contractions involuntary [None]
  - Incorrect dose administered [None]
